FAERS Safety Report 4591000-X (Version None)
Quarter: 2005Q1

REPORT INFORMATION
  Report Type: 
  Country: None (occurrence: None)
  Receive Date: 20050222
  Receipt Date: 20050222
  Transmission Date: 20050727
  Serious: Yes (Life-Threatening)
  Sender: FDA-Public Use
  Company Number: None

PATIENT
  Age: 57 Year
  Sex: Female
  Weight: 68.0396 kg

DRUGS (2)
  1. PAXIL CR [Suspect]
     Indication: ANXIETY
     Dosage: 25 MGM  ONCE PER DAY  ORAL
     Route: 048
     Dates: start: 20030515, end: 20050218
  2. PAXIL CR [Suspect]
     Indication: DEPRESSION
     Dosage: 25 MGM  ONCE PER DAY  ORAL
     Route: 048
     Dates: start: 20030515, end: 20050218

REACTIONS (13)
  - ABNORMAL DREAMS [None]
  - ALCOHOLISM [None]
  - ANGER [None]
  - ANXIETY [None]
  - CONFUSIONAL STATE [None]
  - DIZZINESS [None]
  - HYPERACUSIS [None]
  - IMPAIRED DRIVING ABILITY [None]
  - IMPAIRED WORK ABILITY [None]
  - MEMORY IMPAIRMENT [None]
  - PHOTOSENSITIVITY REACTION [None]
  - SELF MUTILATION [None]
  - SUICIDAL IDEATION [None]
